FAERS Safety Report 22948812 (Version 2)
Quarter: 2023Q4

REPORT INFORMATION
  Report Type: Report from Study
  Country: CA (occurrence: CA)
  Receive Date: 20230915
  Receipt Date: 20231016
  Transmission Date: 20240109
  Serious: Yes (Death, Hospitalization, Other)
  Sender: FDA-Public Use
  Company Number: CA-TAKEDA-2023TUS089177

PATIENT
  Age: 78 Year
  Sex: Male

DRUGS (1)
  1. VEDOLIZUMAB [Suspect]
     Active Substance: VEDOLIZUMAB
     Indication: Immune-mediated enterocolitis
     Dosage: 300 MILLIGRAM
     Route: 042
     Dates: start: 20230909, end: 20230909

REACTIONS (4)
  - Cardiac disorder [Fatal]
  - Neoplasm malignant [Unknown]
  - Respiratory failure [Not Recovered/Not Resolved]
  - Product use in unapproved indication [Unknown]

NARRATIVE: CASE EVENT DATE: 20230909
